FAERS Safety Report 9312103 (Version 3)
Quarter: 2013Q3

REPORT INFORMATION
  Report Type: Spontaneous
  Country: US (occurrence: US)
  Receive Date: 20130528
  Receipt Date: 20130826
  Transmission Date: 20140515
  Serious: Yes (Hospitalization, Other)
  Sender: FDA-Public Use
  Company Number: US-JNJFOC-20130513479

PATIENT
  Age: 42 Year
  Sex: Male
  Weight: 87.54 kg

DRUGS (9)
  1. REMICADE [Suspect]
     Indication: COLITIS ULCERATIVE
     Dosage: START DATE: APPROXIMATELY 21-JUL-2009
     Route: 042
     Dates: start: 200907
  2. REMICADE [Suspect]
     Indication: COLITIS ULCERATIVE
     Route: 042
     Dates: start: 201307
  3. REMICADE [Suspect]
     Indication: COLITIS ULCERATIVE
     Route: 042
     Dates: start: 201001, end: 201307
  4. 6 MP- MERCAPTOPURINE [Suspect]
     Indication: PRODUCT USED FOR UNKNOWN INDICATION
     Route: 065
     Dates: start: 2009, end: 2009
  5. VSL3 [Concomitant]
     Indication: PROBIOTIC THERAPY
     Route: 065
     Dates: start: 201001
  6. VITAMIN D3 [Concomitant]
     Route: 065
     Dates: start: 201101
  7. VITAMIN B COMPLEX [Concomitant]
     Route: 065
     Dates: start: 201101
  8. PREDNISONE [Concomitant]
     Route: 065
     Dates: end: 201101
  9. PREDNISONE [Concomitant]
     Route: 065
     Dates: end: 200912

REACTIONS (10)
  - Pancreatitis [Recovered/Resolved]
  - Antinuclear antibody positive [Not Recovered/Not Resolved]
  - Colitis ulcerative [Recovered/Resolved]
  - Folliculitis [Not Recovered/Not Resolved]
  - Skin disorder [Unknown]
  - Acne [Unknown]
  - Urticaria [Unknown]
  - Eczema [Unknown]
  - Feeling of body temperature change [Not Recovered/Not Resolved]
  - Flushing [Not Recovered/Not Resolved]
